FAERS Safety Report 10625229 (Version 6)
Quarter: 2015Q2

REPORT INFORMATION
  Report Type: Report from Study
  Country: CA (occurrence: CA)
  Receive Date: 20141204
  Receipt Date: 20150616
  Transmission Date: 20150821
  Serious: Yes (Other)
  Sender: FDA-Public Use
  Company Number: PHHY2013CA073101

PATIENT
  Age: 87 Year
  Sex: Female

DRUGS (9)
  1. AFINITOR [Suspect]
     Active Substance: EVEROLIMUS
     Indication: BREAST CANCER
     Dosage: 7.5 MG, QD
     Route: 048
  2. ZOMETA [Suspect]
     Active Substance: ZOLEDRONIC ACID
     Dosage: 4 MG, EVERY 9 WEEKS
     Route: 042
  3. ZOMETA [Suspect]
     Active Substance: ZOLEDRONIC ACID
     Indication: BREAST CANCER
     Dosage: 3 MG, EVERY 9 WEEKS
     Route: 042
     Dates: start: 20130529
  4. ZOMETA [Suspect]
     Active Substance: ZOLEDRONIC ACID
     Dosage: 3 MG, EVERY 9 WEEKS
     Route: 042
  5. ZOMETA [Suspect]
     Active Substance: ZOLEDRONIC ACID
     Dosage: 3 MG, EVERY 6 WEEKS
     Route: 042
  6. ZOMETA [Suspect]
     Active Substance: ZOLEDRONIC ACID
     Dosage: 3 MG, EVERY 9 WEEKS
     Route: 042
  7. ZOMETA [Suspect]
     Active Substance: ZOLEDRONIC ACID
     Dosage: 3 MG, EVERY 9 WEEKS
     Route: 042
     Dates: end: 20150409
  8. ZOMETA [Suspect]
     Active Substance: ZOLEDRONIC ACID
     Dosage: 3 MG
     Route: 042
     Dates: start: 20130703
  9. ZOMETA [Suspect]
     Active Substance: ZOLEDRONIC ACID
     Dosage: 3 MG, EVERY 6 WEEKS
     Route: 042

REACTIONS (18)
  - Second primary malignancy [Unknown]
  - Body temperature decreased [Unknown]
  - Nausea [Recovered/Resolved]
  - Decreased appetite [Recovered/Resolved]
  - Fatigue [Recovered/Resolved]
  - Blood creatinine increased [Unknown]
  - Metastases to liver [Unknown]
  - Blood pressure increased [Unknown]
  - Fatigue [Unknown]
  - Metastases to central nervous system [Unknown]
  - Nausea [Recovered/Resolved]
  - Renal injury [Unknown]
  - Dizziness [Unknown]
  - Lung neoplasm malignant [Unknown]
  - Metastases to kidney [Unknown]
  - Renal disorder [Unknown]
  - Blood creatinine abnormal [Unknown]
  - Vomiting [Recovered/Resolved]

NARRATIVE: CASE EVENT DATE: 201305
